FAERS Safety Report 4910731-2 (Version None)
Quarter: 2006Q1

REPORT INFORMATION
  Report Type: 
  Country: None (occurrence: None)
  Receive Date: 20060209
  Receipt Date: 20060209
  Transmission Date: 20060701
  Serious: Yes (Death, Hospitalization)
  Sender: FDA-Public Use
  Company Number: None

PATIENT
  Sex: Female
  Weight: 49.3 kg

DRUGS (1)
  1. TAXOL [Suspect]
     Indication: OVARIAN EPITHELIAL CANCER
     Dosage: 240 MG
     Dates: start: 20051213, end: 20060104

REACTIONS (10)
  - CARDIAC ARREST [None]
  - DRUG INEFFECTIVE [None]
  - HAEMODIALYSIS [None]
  - HYPERCALCAEMIA [None]
  - MALIGNANT ASCITES [None]
  - MALIGNANT NEOPLASM PROGRESSION [None]
  - METASTASES TO BONE [None]
  - METASTASES TO LYMPH NODES [None]
  - METASTASES TO PERITONEUM [None]
  - OVARIAN EPITHELIAL CANCER [None]
